FAERS Safety Report 22289874 (Version 1)
Quarter: 2023Q2

REPORT INFORMATION
  Report Type: Spontaneous
  Country: IN (occurrence: None)
  Receive Date: 20230504
  Receipt Date: 20230504
  Transmission Date: 20230722
  Serious: Yes (Other)
  Sender: FDA-Public Use
  Company Number: None

PATIENT
  Age: 27 Year
  Sex: Male
  Weight: 68 kg

DRUGS (3)
  1. AMBROXOL\GUAIFENESIN\MENTHOL\TERBUTALINE [Suspect]
     Active Substance: AMBROXOL\GUAIFENESIN\MENTHOL\TERBUTALINE
     Indication: Cough
     Dosage: OTHER QUANTITY : 1 TEASPOON(S);?FREQUENCY : TWICE A DAY;?
     Route: 048
     Dates: start: 20230504, end: 20230504
  2. Cheston cold tablet [Concomitant]
  3. respifresh-A syrup [Concomitant]

REACTIONS (4)
  - Tremor [None]
  - Feeling abnormal [None]
  - Dysstasia [None]
  - Tremor [None]

NARRATIVE: CASE EVENT DATE: 20230504
